FAERS Safety Report 4270846-1 (Version None)
Quarter: 2004Q1

REPORT INFORMATION
  Report Type: 
  Country: None (occurrence: None)
  Receive Date: 20040113
  Receipt Date: 20031219
  Transmission Date: 20041129
  Serious: Yes (Hospitalization, Other)
  Sender: FDA-Public Use
  Company Number: US_031299546

PATIENT
  Age: 88 Year
  Sex: Female
  Weight: 122 kg

DRUGS (4)
  1. PLACEBO [Concomitant]
     Indication: ACUTE MYELOID LEUKAEMIA
     Dosage: 550 MG/OTHER
     Route: 050
     Dates: start: 20031001
  2. CYTARABINE [Suspect]
     Indication: ACUTE MYELOID LEUKAEMIA
     Dosage: 100 MG/M2/OTHER
     Route: 050
     Dates: start: 20031001
  3. DAUNORUBICIN HCL [Suspect]
     Indication: ACUTE MYELOID LEUKAEMIA
     Dosage: 45 MG/M2/OTHER
     Route: 050
     Dates: start: 20031001
  4. NEUPOGEN [Concomitant]

REACTIONS (12)
  - BACTERAEMIA [None]
  - CHILLS [None]
  - CRACKLES LUNG [None]
  - DYSPNOEA [None]
  - ECCHYMOSIS [None]
  - FATIGUE [None]
  - HAEMATOMA [None]
  - HAEMOTHORAX [None]
  - LUNG INFILTRATION [None]
  - PANCYTOPENIA [None]
  - PETECHIAE [None]
  - PYREXIA [None]
